FAERS Safety Report 7502301-7 (Version None)
Quarter: 2011Q2

REPORT INFORMATION
  Report Type: 
  Country: None (occurrence: None)
  Receive Date: 20110525
  Receipt Date: 20091114
  Transmission Date: 20111010
  Serious: Yes (Death, Hospitalization, Other)
  Sender: FDA-Public Use
  Company Number: US-BAYER-200939574NA

PATIENT
  Age: 68 Year
  Sex: Male
  Weight: 91 kg

DRUGS (14)
  1. NITROGLYCERIN [Concomitant]
     Dosage: UNK UNK, PRN
     Route: 060
  2. TRASYLOL [Suspect]
     Indication: CORONARY ARTERY BYPASS
     Dosage: 1 X 10 6 PRIME, TEST DOSE
     Route: 042
     Dates: start: 20010228, end: 20010228
  3. GLIPIZIDE [Concomitant]
     Dosage: 5 MG, QD
     Route: 048
  4. LOPRESSOR [Concomitant]
     Dosage: 50 MG, BID
     Route: 048
  5. COUMADIN [Concomitant]
     Route: 048
  6. CEFAZOLIN [Concomitant]
     Dosage: 2 G, UNK
     Route: 042
     Dates: start: 20010228
  7. TRASYLOL [Suspect]
     Dosage: 150 ML TOTAL, LOADING DOSE
     Route: 042
     Dates: start: 20010228, end: 20010228
  8. IMDUR [Concomitant]
     Dosage: 0 MG, UNK
     Route: 048
  9. VANCOMYCIN [Concomitant]
  10. DIGOXIN [Concomitant]
     Dosage: 0.125 MG, QD
     Route: 048
  11. LIPITOR [Concomitant]
     Dosage: 40 MG, QD
     Route: 048
  12. ASPIRIN [Concomitant]
     Dosage: 325 MG, QD
     Route: 048
  13. LASIX [Concomitant]
     Dosage: 20 MG, UNK
     Route: 048
  14. HEPARIN [Concomitant]
     Dosage: 90 MG, PRIME

REACTIONS (7)
  - RENAL FAILURE ACUTE [None]
  - RENAL FAILURE [None]
  - DEATH [None]
  - EMOTIONAL DISTRESS [None]
  - PAIN [None]
  - INJURY [None]
  - UNEVALUABLE EVENT [None]
